FAERS Safety Report 19030443 (Version 1)
Quarter: 2021Q1

REPORT INFORMATION
  Report Type: Spontaneous
  Country: US (occurrence: US)
  Receive Date: 20210317
  Receipt Date: 20210317
  Transmission Date: 20210420
  Serious: No
  Sender: FDA-Public Use
  Company Number: None

PATIENT
  Age: 45 Year
  Sex: Female
  Weight: 81.65 kg

DRUGS (1)
  1. OTREXUP [Suspect]
     Active Substance: METHOTREXATE
     Indication: RHEUMATOID ARTHRITIS
     Dosage: INJECT 10MG (0.4ML) SUBCUTANEOUSLY ONCE WEEKLY ON THE SAME DAY EACH WEEK AS DIRECTED
     Route: 058
     Dates: start: 202102

REACTIONS (1)
  - Gastrointestinal tube insertion [None]
